FAERS Safety Report 7564591-4 (Version None)
Quarter: 2011Q2

REPORT INFORMATION
  Report Type: 
  Country: None (occurrence: None)
  Receive Date: 20110622
  Receipt Date: 20100706
  Transmission Date: 20111010
  Serious: Yes (Other)
  Sender: FDA-Public Use
  Company Number: US-MYLANLABS-2010S1010852

PATIENT
  Age: 63 Year
  Sex: Male
  Weight: 83.92 kg

DRUGS (9)
  1. CLOZAPINE [Suspect]
     Indication: SCHIZOPHRENIA
     Route: 048
     Dates: start: 20091101, end: 20100607
  2. LAMICTAL [Concomitant]
     Dates: start: 20091101, end: 20100531
  3. ATIVAN [Concomitant]
     Dates: start: 20091101
  4. PREDNISONE [Concomitant]
     Dates: start: 20100424
  5. CLOZAPINE [Suspect]
     Route: 048
     Dates: start: 20091101, end: 20100607
  6. DEPAKOTE ER [Concomitant]
     Dates: start: 20091101
  7. COMBIVENT [Concomitant]
     Route: 055
     Dates: start: 20091101
  8. PEPCID [Concomitant]
     Dates: start: 20091101
  9. RISPERDAL [Concomitant]
     Dates: start: 20091101

REACTIONS (1)
  - GRANULOCYTOPENIA [None]
